FAERS Safety Report 24594522 (Version 2)
Quarter: 2024Q4

REPORT INFORMATION
  Report Type: Spontaneous
  Country: CN (occurrence: CN)
  Receive Date: 20241108
  Receipt Date: 20241112
  Transmission Date: 20250114
  Serious: Yes (Other)
  Sender: NOVARTIS
  Company Number: CN-002147023-NVSC2024CN212617

PATIENT
  Age: 77 Year
  Sex: Male
  Weight: 80 kg

DRUGS (1)
  1. EXFORGE [Suspect]
     Active Substance: AMLODIPINE BESYLATE\VALSARTAN
     Indication: Hypertension
     Dosage: 1 DOSAGE FORM, QD
     Route: 048
     Dates: start: 20210407, end: 20241027

REACTIONS (12)
  - Tricuspid valve incompetence [Unknown]
  - Peripheral arterial occlusive disease [Unknown]
  - Left atrial hypertrophy [Unknown]
  - Blood potassium decreased [Unknown]
  - Arterial insufficiency [Unknown]
  - Varicose vein [Unknown]
  - Synovial cyst [Unknown]
  - Dextrocardia [Unknown]
  - Urinary occult blood positive [Unknown]
  - Body temperature increased [Unknown]
  - Erythema [Unknown]
  - Oedema peripheral [Unknown]

NARRATIVE: CASE EVENT DATE: 20241010
